FAERS Safety Report 10235670 (Version 1)
Quarter: 2014Q2

REPORT INFORMATION
  Report Type: Spontaneous
  Country: FI (occurrence: FI)
  Receive Date: 20140613
  Receipt Date: 20140613
  Transmission Date: 20141212
  Serious: Yes (Other)
  Sender: FDA-Public Use
  Company Number: PHHY2014FI072925

PATIENT
  Age: 31 Year
  Sex: Female

DRUGS (5)
  1. LEPONEX [Suspect]
     Indication: SCHIZOPHRENIA
     Dosage: UNK
     Dates: start: 201404
  2. OMEPRAZOLE [Concomitant]
     Dosage: UNK
  3. STILNOCT [Concomitant]
     Dosage: UNK
  4. TEMESTA [Concomitant]
     Dosage: UNK
  5. TRIPTYL [Concomitant]
     Dosage: UNK

REACTIONS (2)
  - Tooth infection [Unknown]
  - Neutrophil count decreased [Not Recovered/Not Resolved]
